FAERS Safety Report 21046081 (Version 3)
Quarter: 2022Q4

REPORT INFORMATION
  Report Type: Report from Study
  Country: FR (occurrence: FR)
  Receive Date: 20220706
  Receipt Date: 20221004
  Transmission Date: 20230113
  Serious: Yes (Hospitalization)
  Sender: FDA-Public Use
  Company Number: FR-JNJFOC-20220662565

PATIENT
  Age: 20 Year
  Sex: Male
  Weight: 58 kg

DRUGS (2)
  1. REMICADE [Suspect]
     Active Substance: INFLIXIMAB
     Indication: Crohn^s disease
     Route: 041
     Dates: start: 20110304, end: 20130712
  2. STELARA [Concomitant]
     Active Substance: USTEKINUMAB

REACTIONS (2)
  - Candida sepsis [Recovered/Resolved]
  - Abdominal wall infection [Recovered/Resolved with Sequelae]

NARRATIVE: CASE EVENT DATE: 20200523
